FAERS Safety Report 5390197-1 (Version None)
Quarter: 2007Q3

REPORT INFORMATION
  Report Type: 
  Country: None (occurrence: None)
  Receive Date: 20070718
  Receipt Date: 20070712
  Transmission Date: 20080115
  Serious: Yes (Other)
  Sender: FDA-Public Use
  Company Number: US-ROCHE-489118

PATIENT
  Age: 54 Year
  Sex: Male

DRUGS (4)
  1. PEGASYS [Suspect]
     Route: 065
     Dates: start: 20070327
  2. PEGASYS [Suspect]
     Route: 065
     Dates: start: 20060711
  3. RIBAVIRIN [Suspect]
     Route: 065
     Dates: start: 20060711
  4. RIBAVIRIN [Suspect]
     Route: 065
     Dates: end: 20070612

REACTIONS (1)
  - ADENOMA BENIGN [None]
